FAERS Safety Report 5085217-8 (Version None)
Quarter: 2006Q3

REPORT INFORMATION
  Report Type: 
  Country: None (occurrence: None)
  Receive Date: 20060816
  Receipt Date: 20060802
  Transmission Date: 20061208
  Serious: Yes (Other)
  Sender: FDA-Public Use
  Company Number: 2006RR-03152

PATIENT
  Age: 42 Year
  Sex: Male

DRUGS (1)
  1. ACYCLOVIR [Suspect]
     Indication: MENINGOENCEPHALITIS HERPETIC
     Dosage: 1G/8H, INTRAVENOUS
     Route: 042

REACTIONS (2)
  - CONFUSIONAL STATE [None]
  - RENAL FAILURE ACUTE [None]
